FAERS Safety Report 8594485-7 (Version None)
Quarter: 2012Q3

REPORT INFORMATION
  Report Type: 
  Country: None (occurrence: None)
  Receive Date: 20120815
  Receipt Date: 20120802
  Transmission Date: 20120928
  Serious: No
  Sender: FDA-Public Use
  Company Number: US-009507513-1208USA001581

PATIENT

DRUGS (6)
  1. VICTRELIS [Suspect]
     Indication: HEPATITIS C
     Dosage: 800 MG, Q8H
     Route: 048
     Dates: start: 20120201
  2. PEGASYS [Suspect]
     Dosage: 180 MICROGRAM, QW
  3. PEGASYS [Suspect]
     Dosage: 90 MICROGRAM, QW
  4. PROCRIT [Concomitant]
  5. RIBASPHERE [Suspect]
  6. CHLOROQUINE PHOSPHATE [Concomitant]

REACTIONS (1)
  - PLATELET COUNT DECREASED [None]
